FAERS Safety Report 5847473-5 (Version None)
Quarter: 2008Q3

REPORT INFORMATION
  Report Type: 
  Country: None (occurrence: None)
  Receive Date: 20080814
  Receipt Date: 20080804
  Transmission Date: 20090109
  Serious: Yes (Hospitalization)
  Sender: FDA-Public Use
  Company Number: 2008AP001900

PATIENT
  Age: 10 Month
  Sex: Female

DRUGS (2)
  1. TRAMADOL HYDROCHLORIDE [Suspect]
  2. HYDROXYZINE [Suspect]

REACTIONS (11)
  - ACCIDENTAL DRUG INTAKE BY CHILD [None]
  - ACIDOSIS [None]
  - ASPARTATE AMINOTRANSFERASE INCREASED [None]
  - DIARRHOEA [None]
  - DRUG TOXICITY [None]
  - FALL [None]
  - GRAND MAL CONVULSION [None]
  - IRON DEFICIENCY ANAEMIA [None]
  - IRRITABILITY [None]
  - RESPIRATORY DISORDER [None]
  - SINUSITIS [None]
